FAERS Safety Report 8762879 (Version 1)
Quarter: 2012Q4

REPORT INFORMATION
  Report Type: 
  Country: US (occurrence: US)
  Receive Date: 20120829
  Receipt Date: 20120829
  Transmission Date: 20130627
  Serious: No
  Sender: FDA-Public Use
  Company Number: US-PFIZER INC-2012208745

PATIENT
  Age: 3 Year
  Sex: Male
  Weight: 16.78 kg

DRUGS (1)
  1. CHILDRENS ADVIL [Suspect]
     Indication: PYREXIA
     Dosage: 1 tbsp, single dose
     Dates: start: 20120823, end: 20120823

REACTIONS (1)
  - Erythema [Recovered/Resolved]
